FAERS Safety Report 23585537 (Version 1)
Quarter: 2024Q1

REPORT INFORMATION
  Report Type: Spontaneous
  Country: SE (occurrence: SE)
  Receive Date: 20240301
  Receipt Date: 20240301
  Transmission Date: 20240410
  Serious: Yes (Hospitalization)
  Sender: FDA-Public Use
  Company Number: SE-Desitin-2023-03116

PATIENT
  Age: 32 Year
  Sex: Female
  Weight: 85 kg

DRUGS (22)
  1. CLONIDINE [Suspect]
     Active Substance: CLONIDINE
     Indication: Oedema peripheral
     Dosage: UNK
     Route: 065
  2. CLONIDINE [Suspect]
     Active Substance: CLONIDINE
     Indication: Hypertension
  3. FUROSEMIDE [Suspect]
     Active Substance: FUROSEMIDE
     Indication: Hypertension
     Dosage: UNK
     Route: 065
  4. LAMOTRIGINE [Suspect]
     Active Substance: LAMOTRIGINE
     Indication: Post-traumatic stress disorder
     Dosage: UNK
     Route: 065
  5. LABETALOL [Suspect]
     Active Substance: LABETALOL\LABETALOL HYDROCHLORIDE
     Indication: Hypertension
     Dosage: UNK
     Route: 065
  6. LABETALOL [Suspect]
     Active Substance: LABETALOL\LABETALOL HYDROCHLORIDE
     Indication: Oedema peripheral
  7. MAGNESIUM SULFATE [Suspect]
     Active Substance: MAGNESIUM SULFATE\MAGNESIUM SULFATE HEPTAHYDRATE
     Indication: Seizure prophylaxis
     Dosage: UNK
     Route: 065
  8. NIFEDIPINE [Suspect]
     Active Substance: NIFEDIPINE
     Indication: Hypertension
     Dosage: UNK
     Route: 065
  9. NIFEDIPINE [Suspect]
     Active Substance: NIFEDIPINE
     Indication: Oedema peripheral
  10. OLANZAPINE [Suspect]
     Active Substance: OLANZAPINE
     Dosage: 10.000MG QD
     Route: 065
  11. OLANZAPINE [Suspect]
     Active Substance: OLANZAPINE
     Dosage: 2.500MG
     Route: 065
  12. OLANZAPINE [Suspect]
     Active Substance: OLANZAPINE
     Indication: Anxiety
     Dosage: 5.000MG
     Route: 065
  13. OLANZAPINE [Suspect]
     Active Substance: OLANZAPINE
     Dosage: 7.500MG QD
     Route: 065
  14. ONDANSETRON [Suspect]
     Active Substance: ONDANSETRON
     Indication: Product used for unknown indication
     Dosage: 4.000MG
     Route: 065
  15. OXAZEPAM [Suspect]
     Active Substance: OXAZEPAM
     Indication: Anxiety
     Dosage: 10.000MG
     Route: 065
  16. PROMETHAZINE [Suspect]
     Active Substance: PROMETHAZINE HYDROCHLORIDE
     Indication: Anxiety
     Dosage: 25.000MG
     Route: 065
  17. QUETIAPINE [Suspect]
     Active Substance: QUETIAPINE
     Indication: Product used for unknown indication
     Dosage: NIGHTLY
     Route: 065
  18. VENLAFAXINE [Suspect]
     Active Substance: VENLAFAXINE HYDROCHLORIDE
     Indication: Obsessive-compulsive disorder
     Dosage: 187.500MG QD
     Route: 065
  19. VENLAFAXINE [Suspect]
     Active Substance: VENLAFAXINE HYDROCHLORIDE
     Indication: Borderline personality disorder
     Dosage: 225.000MG QD
     Route: 065
  20. VENLAFAXINE [Suspect]
     Active Substance: VENLAFAXINE HYDROCHLORIDE
     Indication: Generalised anxiety disorder
  21. VENLAFAXINE [Suspect]
     Active Substance: VENLAFAXINE HYDROCHLORIDE
     Indication: Post-traumatic stress disorder
  22. ZOLPIDEM [Suspect]
     Active Substance: ZOLPIDEM TARTRATE
     Indication: Sleep disorder
     Dosage: NIGHTLY
     Route: 065

REACTIONS (10)
  - Rebound effect [Unknown]
  - Hypoalbuminaemia [Recovering/Resolving]
  - Proteinuria [Recovering/Resolving]
  - Maternal exposure during pregnancy [Unknown]
  - Generalised anxiety disorder [Unknown]
  - Borderline personality disorder [Unknown]
  - Drug ineffective [Unknown]
  - Obsessive-compulsive disorder [Unknown]
  - Post-traumatic stress disorder [Unknown]
  - Off label use [Unknown]
